FAERS Safety Report 5109853-5 (Version None)
Quarter: 2006Q3

REPORT INFORMATION
  Report Type: 
  Country: None (occurrence: None)
  Receive Date: 20060918
  Receipt Date: 20060918
  Transmission Date: 20061208
  Serious: Yes (Hospitalization)
  Sender: FDA-Public Use
  Company Number: None

PATIENT
  Age: 8 Year
  Sex: Male
  Weight: 59 kg

DRUGS (7)
  1. ZITHROMAX [Suspect]
     Indication: BRONCHITIS
     Dosage: 13 MLS 1ST DAY, THEN 6 MLS   QD   ORAL
     Route: 048
     Dates: start: 20060524, end: 20060529
  2. ZITHROMAX [Suspect]
     Indication: PNEUMONIA
     Dosage: 13 MLS 1ST DAY, THEN 6 MLS   QD   ORAL
     Route: 048
     Dates: start: 20060524, end: 20060529
  3. LYRICA [Suspect]
     Indication: CONVULSION
     Dosage: 100 MG   BID   ORAL
     Route: 048
  4. VALPROATE SODIUM [Concomitant]
  5. ZONEGRAN [Concomitant]
  6. ALBUTEROL [Concomitant]
  7. CLINDAMYCIN [Concomitant]

REACTIONS (6)
  - DRUG ERUPTION [None]
  - DRUG HYPERSENSITIVITY [None]
  - PNEUMONIA [None]
  - STEVENS-JOHNSON SYNDROME [None]
  - TREMOR [None]
  - VIRAL RASH [None]
